FAERS Safety Report 5318904-4 (Version None)
Quarter: 2007Q1

REPORT INFORMATION
  Report Type: 
  Country: None (occurrence: None)
  Receive Date: 20070201
  Receipt Date: 20061205
  Transmission Date: 20070707
  Serious: No
  Sender: FDA-Public Use
  Company Number: VNL_0325_2006

PATIENT
  Sex: Male

DRUGS (1)
  1. APOKYN [Suspect]
     Dosage: DF ONCE SC
     Route: 058
     Dates: start: 20061127, end: 20061127

REACTIONS (2)
  - BLOOD GLUCOSE DECREASED [None]
  - LETHARGY [None]
